FAERS Safety Report 5655993-1 (Version None)
Quarter: 2008Q1

REPORT INFORMATION
  Report Type: 
  Country: None (occurrence: None)
  Receive Date: 20080307
  Receipt Date: 20080226
  Transmission Date: 20080703
  Serious: Yes (Death, Hospitalization)
  Sender: FDA-Public Use
  Company Number: JP-PFIZER INC-2008018544

PATIENT
  Sex: Male
  Weight: 72 kg

DRUGS (12)
  1. AZULFIDINE EN-TABS [Suspect]
  2. ETANERCEPT [Suspect]
     Indication: RHEUMATOID ARTHRITIS
     Route: 058
     Dates: start: 20070205, end: 20070809
  3. LIMAPROST [Suspect]
     Route: 048
  4. FOLIAMIN [Concomitant]
     Route: 048
  5. PREDNISOLONE [Concomitant]
     Indication: RHEUMATOID ARTHRITIS
     Route: 048
     Dates: start: 20040101, end: 20070119
  6. TEPRENONE [Concomitant]
  7. ETODOLAC [Concomitant]
  8. PYRIDOXAL PHOSPHATE [Concomitant]
  9. BUCILLAMINE [Concomitant]
  10. LOXOPROFEN [Concomitant]
  11. METHOTREXATE [Concomitant]
     Indication: RHEUMATOID ARTHRITIS
     Route: 048
     Dates: start: 20070119, end: 20070318
  12. ISONIAZID [Concomitant]

REACTIONS (4)
  - CONDITION AGGRAVATED [None]
  - ECZEMA [None]
  - GASTROINTESTINAL PERFORATION [None]
  - PETECHIAE [None]
